FAERS Safety Report 24059846 (Version 2)
Quarter: 2024Q3

REPORT INFORMATION
  Report Type: Spontaneous
  Country: US (occurrence: US)
  Receive Date: 20240708
  Receipt Date: 20240905
  Transmission Date: 20241017
  Serious: No
  Sender: APOTEX
  Company Number: US-APOTEX-2024AP007675

PATIENT
  Age: 77 Year
  Sex: Female

DRUGS (2)
  1. IPRATROPIUM BROMIDE [Suspect]
     Active Substance: IPRATROPIUM BROMIDE\IPRATROPIUM BROMIDE ANHYDROUS
     Indication: Sinus disorder
     Dosage: UNK, QD
     Route: 045
     Dates: start: 20240619
  2. IPRATROPIUM BROMIDE [Suspect]
     Active Substance: IPRATROPIUM BROMIDE\IPRATROPIUM BROMIDE ANHYDROUS
     Indication: Allergic cough

REACTIONS (3)
  - Incorrect dose administered [Unknown]
  - Product delivery mechanism issue [Unknown]
  - Device issue [Unknown]

NARRATIVE: CASE EVENT DATE: 20240619
